FAERS Safety Report 5430516-0 (Version None)
Quarter: 2007Q3

REPORT INFORMATION
  Report Type: 
  Country: None (occurrence: None)
  Receive Date: 20070830
  Receipt Date: 20070815
  Transmission Date: 20080115
  Serious: No
  Sender: FDA-Public Use
  Company Number: MY-ELI_LILLY_AND_COMPANY-MY200708003550

PATIENT
  Sex: Male

DRUGS (1)
  1. CIALIS [Suspect]
     Indication: ERECTILE DYSFUNCTION
     Dosage: 6 MG, AS NEEDED
     Route: 048
     Dates: start: 20070811, end: 20070801

REACTIONS (3)
  - HEADACHE [None]
  - RHINORRHOEA [None]
  - VISION BLURRED [None]
